FAERS Safety Report 6936059-7 (Version None)
Quarter: 2010Q3

REPORT INFORMATION
  Report Type: 
  Country: None (occurrence: None)
  Receive Date: 20100816
  Receipt Date: 20090911
  Transmission Date: 20110219
  Serious: Yes (Other)
  Sender: FDA-Public Use
  Company Number: US-WYE-H10953809

PATIENT
  Age: 66 Year
  Sex: Female

DRUGS (12)
  1. TYGACIL [Suspect]
     Dosage: NORMAL
     Dates: start: 20090808, end: 20090825
  2. TYGACIL [Suspect]
     Dosage: NORMAL
     Dates: start: 20090831, end: 20090904
  3. CLONIDINE [Concomitant]
  4. LISINOPRIL [Concomitant]
  5. AMLODIPINE [Concomitant]
  6. SPIRONOLACTONE [Concomitant]
  7. FUROSEMIDE [Concomitant]
  8. SUCRALFATE [Concomitant]
  9. ACIDOPHILUS ^ZYMA^ (LACTOBACILLUS ACIDOPHILUS) [Concomitant]
  10. NEBIVOLOL HCL [Concomitant]
  11. MAGNESIUM OXIDE (MAGNESIUM OXIDE) [Concomitant]
  12. CHOLESTYRAMINE RESIN (COLESTYRAMINE) [Concomitant]

REACTIONS (1)
  - HEPATIC FAILURE [None]
